FAERS Safety Report 10153527 (Version 1)
Quarter: 2014Q2

REPORT INFORMATION
  Report Type: Spontaneous
  Country: NL (occurrence: NL)
  Receive Date: 20140505
  Receipt Date: 20140505
  Transmission Date: 20141212
  Serious: Yes (Other)
  Sender: FDA-Public Use
  Company Number: NL-PFIZER INC-2014121100

PATIENT
  Age: 75 Year
  Sex: Male

DRUGS (13)
  1. AZITHROMYCIN [Suspect]
     Indication: PROPHYLAXIS
     Dosage: 250 MG, 3X/WEEK
     Dates: start: 20140304
  2. CARBASALATE CALCIUM [Concomitant]
     Dosage: 100 MG, 1X/DAY
  3. ATENOLOL [Concomitant]
     Dosage: 50 MG, 1X/DAY
  4. DOXAZOSINE [Concomitant]
     Dosage: 4 MG, 1X/DAY
  5. ENALAPRIL [Concomitant]
     Dosage: 5 MG, 2X/DAY
  6. FUROSEMIDE [Concomitant]
     Dosage: 40 MG, 1X/DAY
  7. NIFEDIPINE [Concomitant]
     Dosage: 30 MG, 1X/DAY
  8. FINASTERIDE [Concomitant]
     Dosage: 5 MG, 1X/DAY
  9. TAMSULOSIN [Concomitant]
     Dosage: 0.4 MG, 1X/DAY
  10. PANTOPRAZOL [Concomitant]
     Dosage: 20 MG, 1X/DAY
  11. CRESTOR [Concomitant]
     Dosage: 5 MG, 1X/DAY
  12. ATROVENT [Concomitant]
     Dosage: 2 DF, 4X/DAY
  13. FOSTER 100/6 [Concomitant]
     Dosage: 2 DF, 2X/DAY

REACTIONS (2)
  - Polyneuropathy [Unknown]
  - Hypoacusis [Unknown]
